FAERS Safety Report 6772167-1 (Version None)
Quarter: 2010Q2

REPORT INFORMATION
  Report Type: 
  Country: None (occurrence: None)
  Receive Date: 20100616
  Receipt Date: 20080612
  Transmission Date: 20101027
  Serious: Yes (Hospitalization)
  Sender: FDA-Public Use
  Company Number: PHHO2007US16421

PATIENT
  Sex: Female
  Weight: 60.4 kg

DRUGS (6)
  1. CIBADREX T29368+ [Suspect]
     Indication: ESSENTIAL HYPERTENSION
     Dosage: LEVEL 1
     Route: 048
     Dates: start: 20040129
  2. CIBADREX T29368+ [Suspect]
     Dosage: LEVEL 3
     Route: 048
  3. ATENOLOL [Concomitant]
     Indication: HYPERTENSION
     Dosage: 12.5 MG, QD
     Route: 048
     Dates: start: 20040322
  4. CRESTOR [Concomitant]
     Indication: HYPERLIPIDAEMIA
     Dosage: 20 MG, QD
     Route: 048
     Dates: start: 20050211
  5. ZETIA [Concomitant]
     Indication: HYPERLIPIDAEMIA
     Dosage: 10 MG, QD
     Route: 048
     Dates: start: 20030630
  6. ASPIRIN [Concomitant]

REACTIONS (2)
  - HYPONATRAEMIA [None]
  - INAPPROPRIATE ANTIDIURETIC HORMONE SECRETION [None]
